APPROVED DRUG PRODUCT: PENTASA
Active Ingredient: MESALAMINE
Strength: 250MG
Dosage Form/Route: CAPSULE, EXTENDED RELEASE;ORAL
Application: N020049 | Product #001
Applicant: TAKEDA PHARMACEUTICALS USA INC
Approved: May 10, 1993 | RLD: Yes | RS: No | Type: RX